FAERS Safety Report 23918593 (Version 3)
Quarter: 2024Q3

REPORT INFORMATION
  Report Type: Report from Study
  Country: US (occurrence: US)
  Receive Date: 20240530
  Receipt Date: 20240805
  Transmission Date: 20241016
  Serious: Yes (Disabling, Other)
  Sender: SANOFI AVENTIS
  Company Number: US-SANOFI-02063715

PATIENT
  Age: 77 Year
  Sex: Female

DRUGS (3)
  1. LANTUS SOLOSTAR [Suspect]
     Active Substance: INSULIN GLARGINE
     Indication: Diabetes mellitus
     Dosage: 30 IU, QD
     Route: 058
  2. LANTUS SOLOSTAR [Suspect]
     Active Substance: INSULIN GLARGINE
     Indication: Type 2 diabetes mellitus
  3. LANTUS SOLOSTAR [Suspect]
     Active Substance: INSULIN GLARGINE
     Indication: Hyperglycaemia

REACTIONS (4)
  - Cerebrovascular accident [Recovering/Resolving]
  - Disability [Unknown]
  - Limb discomfort [Unknown]
  - Ear disorder [Unknown]

NARRATIVE: CASE EVENT DATE: 20240401
